FAERS Safety Report 6136584-5 (Version None)
Quarter: 2009Q1

REPORT INFORMATION
  Report Type: 
  Country: None (occurrence: None)
  Receive Date: 20090330
  Receipt Date: 20090324
  Transmission Date: 20090719
  Serious: Yes (Life-Threatening, Hospitalization)
  Sender: FDA-Public Use
  Company Number: US-PFIZER INC-2008079717

PATIENT
  Sex: Female
  Weight: 87.982 kg

DRUGS (14)
  1. NAPROXEN [Suspect]
     Indication: OSTEOARTHRITIS
     Route: 048
     Dates: start: 20080817, end: 20080915
  2. BLINDED *PLACEBO [Suspect]
     Indication: OSTEOARTHRITIS
     Route: 048
     Dates: start: 20080817, end: 20080915
  3. BLINDED CELECOXIB [Suspect]
     Indication: OSTEOARTHRITIS
     Route: 048
     Dates: start: 20080817, end: 20080915
  4. IBUPROFEN [Suspect]
     Indication: OSTEOARTHRITIS
     Route: 048
     Dates: start: 20080817, end: 20080915
  5. NAPROXEN [Suspect]
     Route: 048
     Dates: start: 20080817, end: 20080915
  6. NAPROXEN [Suspect]
     Indication: RHEUMATOID ARTHRITIS
  7. BLINDED *PLACEBO [Suspect]
     Indication: RHEUMATOID ARTHRITIS
  8. CELECOXIB [Suspect]
     Indication: RHEUMATOID ARTHRITIS
  9. IBUPROFEN [Suspect]
     Indication: RHEUMATOID ARTHRITIS
  10. NAPROXEN [Suspect]
  11. NEXIUM [Concomitant]
     Dosage: UNK
     Dates: start: 20080814
  12. METHOTREXATE [Concomitant]
     Route: 048
     Dates: start: 19800101
  13. PRINZIDE [Concomitant]
     Route: 048
     Dates: start: 20030101
  14. FOLIC ACID [Concomitant]
     Route: 048
     Dates: start: 19800101

REACTIONS (1)
  - RENAL FAILURE [None]
